FAERS Safety Report 14153634 (Version 2)
Quarter: 2018Q1

REPORT INFORMATION
  Report Type: Spontaneous
  Country: US (occurrence: US)
  Receive Date: 20171102
  Receipt Date: 20180201
  Transmission Date: 20180508
  Serious: No
  Sender: FDA-Public Use
  Company Number: US-SA-2017SA172447

PATIENT
  Age: 55 Year
  Sex: Female

DRUGS (3)
  1. ALIROCUMAB PREFILLED PEN [Suspect]
     Active Substance: ALIROCUMAB
     Indication: TYPE IIA HYPERLIPIDAEMIA
     Dates: start: 201708
  2. PRALUENT [Suspect]
     Active Substance: ALIROCUMAB
     Indication: TYPE IIA HYPERLIPIDAEMIA
     Route: 058
     Dates: start: 201708
  3. REPATHA [Concomitant]
     Active Substance: EVOLOCUMAB
     Route: 065

REACTIONS (4)
  - Dry mouth [Unknown]
  - Chills [Unknown]
  - Feeling cold [Unknown]
  - Chest discomfort [Unknown]

NARRATIVE: CASE EVENT DATE: 2017
